FAERS Safety Report 8544402-0 (Version None)
Quarter: 2012Q3

REPORT INFORMATION
  Report Type: 
  Country: None (occurrence: None)
  Receive Date: 20120727
  Receipt Date: 20120719
  Transmission Date: 20120928
  Serious: Yes (Other)
  Sender: FDA-Public Use
  Company Number: US-PFIZER INC-A020643

PATIENT
  Sex: Female
  Weight: 61.23 kg

DRUGS (22)
  1. DEPAKOTE [Suspect]
     Indication: CONVULSION
     Route: 048
     Dates: start: 19980101, end: 19980101
  2. DILANTIN-125 [Suspect]
     Dosage: DAILY
     Route: 048
     Dates: start: 19960116
  3. GABITRIL [Concomitant]
     Route: 048
     Dates: start: 19990101, end: 19990101
  4. KLONOPIN [Concomitant]
     Dosage: UNK
     Dates: start: 19971101, end: 20000201
  5. NEURONTIN [Concomitant]
     Dosage: 300 MG, 3X/DAY
     Dates: start: 19951201
  6. DILANTIN-125 [Suspect]
     Dosage: DAILY
     Dates: start: 19990101, end: 20000101
  7. ZOLOFT [Suspect]
     Dosage: DAILY
     Route: 065
     Dates: start: 19931206
  8. DILANTIN-125 [Suspect]
     Dosage: DAILY
     Route: 048
     Dates: start: 19970401, end: 19971101
  9. DILANTIN-125 [Suspect]
     Dosage: 200 MG ALTERNATING WITH 300 MG DAILY
     Route: 048
     Dates: end: 19961023
  10. DEPAKOTE [Suspect]
     Dosage: UNK
     Dates: start: 19990901
  11. DILANTIN-125 [Suspect]
     Dosage: DAILY
     Route: 048
     Dates: start: 19931023
  12. DILANTIN-125 [Suspect]
     Dosage: 300 MG ALTERNATING WITH 400 MG DAILY
     Route: 048
     Dates: start: 19971101, end: 19981101
  13. ZOLOFT [Suspect]
     Indication: DEPRESSION
     Dosage: QAM
     Route: 065
     Dates: start: 19931006, end: 19931001
  14. ZOLOFT [Suspect]
     Dosage: QAM
     Route: 065
     Dates: end: 20000228
  15. ZOLOFT [Suspect]
     Dosage: 200 MG DAILY
     Dates: start: 19990701
  16. TYLENOL [Suspect]
     Dosage: UNK
     Route: 065
     Dates: start: 19940901
  17. ULTRAM [Concomitant]
     Indication: HEADACHE
     Dosage: UNK
     Dates: start: 19970923
  18. DILANTIN-125 [Suspect]
     Indication: CONVULSION
     Dosage: ONE DOSE
     Route: 048
     Dates: start: 19931022, end: 19931022
  19. ZOLOFT [Suspect]
     Indication: HEADACHE
     Dosage: 50-100 MG,DAILY
     Route: 065
     Dates: start: 19930408, end: 19931006
  20. ZOLOFT [Suspect]
     Dosage: DAILY
     Route: 065
     Dates: end: 19940101
  21. TYLENOL [Suspect]
     Indication: HEADACHE
     Dosage: UNK
     Dates: start: 19930101
  22. LAMICTAL [Suspect]
     Indication: CONVULSION
     Route: 048
     Dates: start: 19981201, end: 19990201

REACTIONS (31)
  - ATAXIA [None]
  - GAMMA-GLUTAMYLTRANSFERASE INCREASED [None]
  - OEDEMA PERIPHERAL [None]
  - FATIGUE [None]
  - APRAXIA [None]
  - CONFUSIONAL STATE [None]
  - DIZZINESS [None]
  - WEIGHT INCREASED [None]
  - GRAND MAL CONVULSION [None]
  - BONE DENSITY DECREASED [None]
  - COORDINATION ABNORMAL [None]
  - VOMITING [None]
  - MEMORY IMPAIRMENT [None]
  - SLEEP DISORDER [None]
  - COGNITIVE DISORDER [None]
  - GASTROINTESTINAL DISORDER [None]
  - DRUG LEVEL FLUCTUATING [None]
  - ALOPECIA [None]
  - SENSATION OF HEAVINESS [None]
  - TREMOR [None]
  - HEPATIC ENZYME INCREASED [None]
  - TIBIA FRACTURE [None]
  - ANXIETY [None]
  - CONVULSION [None]
  - HEADACHE [None]
  - NAUSEA [None]
  - SIMPLE PARTIAL SEIZURES [None]
  - BLOOD TRIGLYCERIDES INCREASED [None]
  - RASH [None]
  - HYPOAESTHESIA [None]
  - ARTHRALGIA [None]
